FAERS Safety Report 9849110 (Version 1)
Quarter: 2014Q1

REPORT INFORMATION
  Report Type: Spontaneous
  Country: US (occurrence: None)
  Receive Date: 20140127
  Receipt Date: 20140127
  Transmission Date: 20141002
  Serious: Yes (Life-Threatening, Hospitalization, Disabling)
  Sender: FDA-Public Use
  Company Number: None

PATIENT
  Age: 68 Year
  Sex: Male
  Weight: 54.89 kg

DRUGS (2)
  1. AMIODARONE [Suspect]
     Indication: ATRIAL FIBRILLATION
     Dosage: TAKEN BY MOUTH
     Dates: start: 20131007, end: 20131102
  2. COUMADIN [Suspect]
     Dosage: TAKEN BY MOUTH
     Dates: start: 20131007, end: 20131029

REACTIONS (7)
  - Pneumonia aspiration [None]
  - Bacterial infection [None]
  - Activities of daily living impaired [None]
  - Pulmonary haemorrhage [None]
  - Weight decreased [None]
  - Speech disorder [None]
  - Dysphagia [None]
